FAERS Safety Report 10235250 (Version 1)
Quarter: 2014Q2

REPORT INFORMATION
  Report Type: Spontaneous
  Country: US (occurrence: US)
  Receive Date: 20140613
  Receipt Date: 20140613
  Transmission Date: 20141212
  Serious: Yes (Hospitalization)
  Sender: FDA-Public Use
  Company Number: US-B.I. PHARMACEUTICALS,INC./RIDGEFIELD-2014-BI-25990BP

PATIENT
  Age: 86 Year
  Sex: Female

DRUGS (20)
  1. SPIRIVA [Suspect]
     Indication: CHRONIC OBSTRUCTIVE PULMONARY DISEASE
     Dosage: 18 MCG
     Route: 055
  2. SYMBICORT [Concomitant]
     Route: 055
  3. DEPAKOTE [Concomitant]
     Indication: CONVULSION
     Route: 048
  4. FUROSEMIDE [Concomitant]
     Route: 048
  5. POTASSIUM [Concomitant]
     Route: 048
  6. OMEPRAZOLE [Concomitant]
     Indication: ABDOMINAL DISCOMFORT
     Route: 048
  7. MULTIVITAMIN [Concomitant]
     Route: 048
  8. IRON [Concomitant]
     Route: 048
  9. FISH OIL [Concomitant]
     Route: 048
  10. OMEGA 3 [Concomitant]
     Route: 048
  11. CRANBERRY SUPPLEMENT [Concomitant]
     Route: 048
  12. CALCIUM [Concomitant]
     Route: 048
  13. VITAMIN C [Concomitant]
     Route: 048
  14. VITAMIN E [Concomitant]
     Route: 048
  15. XOPENEX [Concomitant]
     Route: 055
  16. XANAX [Concomitant]
     Indication: ANXIETY
     Route: 048
  17. BIOTIN [Concomitant]
     Route: 048
  18. MELATONIN [Concomitant]
     Route: 048
  19. STOOL SOFTENER [Concomitant]
     Route: 048
  20. ASPIRIN [Concomitant]
     Route: 048

REACTIONS (3)
  - Chronic obstructive pulmonary disease [Recovered/Resolved]
  - Chronic obstructive pulmonary disease [Not Recovered/Not Resolved]
  - Peripheral swelling [Not Recovered/Not Resolved]
